FAERS Safety Report 7935728-X (Version None)
Quarter: 2011Q4

REPORT INFORMATION
  Report Type: 
  Country: None (occurrence: None)
  Receive Date: 20111123
  Receipt Date: 20111117
  Transmission Date: 20120403
  Serious: Yes (Death, Other)
  Sender: FDA-Public Use
  Company Number: US-AMGEN-USASP2011058884

PATIENT
  Age: 50 Year
  Sex: Female
  Weight: 65.578 kg

DRUGS (15)
  1. NEULASTA [Suspect]
     Dosage: 4 MG, PRN
     Route: 058
     Dates: start: 20100604, end: 20110504
  2. NEULASTA [Suspect]
     Dosage: UNK UNK, PRN
  3. ABRAXANE [Concomitant]
     Indication: BREAST CANCER
     Dosage: UNK
  4. ERGOCALCIFEROL [Concomitant]
     Dosage: UNK UNK, QWK
  5. LITHIUM CARBONATE [Concomitant]
     Dosage: 300 MG, QD
     Route: 048
  6. LORAZEPAM [Concomitant]
     Dosage: 1 MG, PRN
     Route: 048
  7. L-GLUTAMINE                        /00503401/ [Concomitant]
     Route: 048
  8. PRILOSEC [Concomitant]
     Dosage: 20 MG, QD
     Route: 048
  9. ERIBULIN [Concomitant]
     Indication: BREAST CANCER
     Dosage: UNK
     Dates: start: 20101217, end: 20110225
  10. DEXAMETHASONE [Concomitant]
     Dosage: 5 MG, UNK
  11. CITALOPRAM HYDROBROMIDE [Concomitant]
     Dosage: 20 MG, QD
     Route: 048
  12. DARBEPOETIN ALFA [Suspect]
     Indication: PRODUCT USED FOR UNKNOWN INDICATION
     Dosage: UNK
     Dates: start: 20100409
  13. ANTINEOPLASTIC AGENTS [Concomitant]
  14. GEMCITABINE [Concomitant]
     Dosage: 1000 MG/M2, UNK
  15. AROMASIN [Concomitant]
     Dosage: 25 MG, QD
     Dates: start: 20110311

REACTIONS (17)
  - HEPATIC CIRRHOSIS [None]
  - CONSTIPATION [None]
  - WEIGHT INCREASED [None]
  - DEATH [None]
  - PALLOR [None]
  - HYPOAESTHESIA [None]
  - ALOPECIA [None]
  - PELVIC PAIN [None]
  - TENDERNESS [None]
  - ASTHENIA [None]
  - FACIAL WASTING [None]
  - RADIATION ASSOCIATED PAIN [None]
  - NEUROPATHY PERIPHERAL [None]
  - FOETOR HEPATICUS [None]
  - FATIGUE [None]
  - BONE PAIN [None]
  - ASCITES [None]
